FAERS Safety Report 22823581 (Version 3)
Quarter: 2023Q4

REPORT INFORMATION
  Report Type: Spontaneous
  Country: IN (occurrence: IN)
  Receive Date: 20230815
  Receipt Date: 20231114
  Transmission Date: 20240110
  Serious: Yes (Other)
  Sender: FDA-Public Use
  Company Number: IN-PFIZER INC-PV202300139423

PATIENT
  Age: 27 Year
  Sex: Male

DRUGS (1)
  1. LORLATINIB [Suspect]
     Active Substance: LORLATINIB
     Indication: Non-small cell lung cancer
     Dosage: 100 MG, 1X/DAY
     Route: 048
     Dates: start: 202307

REACTIONS (11)
  - Platelet count decreased [Unknown]
  - Hyperglycaemia [Unknown]
  - Viral infection [Recovered/Resolved]
  - Blood creatinine increased [Recovering/Resolving]
  - Dyslipidaemia [Unknown]
  - Dizziness [Unknown]
  - Chest pain [Unknown]
  - Lymphadenopathy [Unknown]
  - Haemoglobin decreased [Unknown]
  - Amylase increased [Unknown]
  - Hyperchlorhydria [Unknown]
